FAERS Safety Report 18096796 (Version 1)
Quarter: 2020Q3

REPORT INFORMATION
  Report Type: Spontaneous
  Country: US (occurrence: US)
  Receive Date: 20200731
  Receipt Date: 20200731
  Transmission Date: 20201103
  Serious: Yes (Other)
  Sender: FDA-Public Use
  Company Number: US-LUPIN PHARMACEUTICALS INC.-2020-03997

PATIENT
  Age: 4 Year
  Sex: Male

DRUGS (9)
  1. POSACONAZOLE [Suspect]
     Active Substance: POSACONAZOLE
     Indication: COCCIDIOIDOMYCOSIS
     Dosage: UNK
     Route: 065
  2. SERTRALINE [Suspect]
     Active Substance: SERTRALINE HYDROCHLORIDE
     Indication: DISSEMINATED COCCIDIOIDOMYCOSIS
     Dosage: UNK
     Route: 065
  3. FLUCONAZOLE. [Suspect]
     Active Substance: FLUCONAZOLE
     Indication: COCCIDIOIDOMYCOSIS
     Dosage: UNK
     Route: 065
  4. INTERFERON GAMMA NOS [Concomitant]
     Active Substance: INTERFERON GAMMA
     Indication: COCCIDIOIDOMYCOSIS
     Dosage: 50 MICRO GRAM PER SQUARE METER OF BODY?SURFACE AREA THREE TIMES PER WEEK
     Route: 058
  5. INTERFERON GAMMA NOS [Concomitant]
     Active Substance: INTERFERON GAMMA
     Dosage: 200 MICRO GRAM PER SQUARE METER OF BODY?SURFACE AREA THREE TIMES PER WEEK
     Route: 058
  6. DUPILUMAB [Concomitant]
     Active Substance: DUPILUMAB
     Indication: COCCIDIOIDOMYCOSIS
     Dosage: 2 MILLIGRAM/KILOGRAM, WEEKLY
     Route: 065
  7. AMPHOTERICIN B, LIPOSOME [Suspect]
     Active Substance: AMPHOTERICIN B
     Indication: COCCIDIOIDOMYCOSIS
     Dosage: (INITIAL DOSE NOT STATED)
     Route: 065
  8. AMPHOTERICIN B, LIPOSOME [Suspect]
     Active Substance: AMPHOTERICIN B
     Dosage: HIGH DOSE
     Route: 065
  9. DUPILUMAB [Concomitant]
     Active Substance: DUPILUMAB
     Dosage: 6 MILLIGRAM/KILOGRAM, WEEKLY
     Route: 065

REACTIONS (2)
  - Off label use [Unknown]
  - Drug ineffective for unapproved indication [Unknown]
